FAERS Safety Report 20838273 (Version 2)
Quarter: 2022Q2

REPORT INFORMATION
  Report Type: Spontaneous
  Country: CA (occurrence: CA)
  Receive Date: 20220517
  Receipt Date: 20220609
  Transmission Date: 20220721
  Serious: Yes (Hospitalization, Other)
  Sender: FDA-Public Use
  Company Number: CA-MICRO LABS LIMITED-ML2022-02111

PATIENT
  Age: 78 Year
  Sex: Male

DRUGS (1)
  1. RANOLAZINE [Suspect]
     Active Substance: RANOLAZINE
     Dates: start: 202204

REACTIONS (4)
  - Haematochezia [Unknown]
  - Mouth haemorrhage [Unknown]
  - Epistaxis [Unknown]
  - Pulmonary oedema [Unknown]
